FAERS Safety Report 15793179 (Version 1)
Quarter: 2019Q1

REPORT INFORMATION
  Report Type: Spontaneous
  Country: JP (occurrence: JP)
  Receive Date: 20190107
  Receipt Date: 20190107
  Transmission Date: 20190417
  Serious: Yes (Disabling)
  Sender: FDA-Public Use
  Company Number: JP-IPSEN BIOPHARMACEUTICALS, INC.-2018-07739

PATIENT
  Age: 80 Year
  Sex: Female

DRUGS (6)
  1. SOMATULINE 120MG [Suspect]
     Active Substance: LANREOTIDE ACETATE
     Dosage: DOSE NOT REPORTED
     Route: 065
     Dates: start: 20180820
  2. SOMATULINE 120MG [Suspect]
     Active Substance: LANREOTIDE ACETATE
     Indication: NEUROENDOCRINE TUMOUR
     Route: 058
     Dates: start: 20180416, end: 20180514
  3. SOMATULINE 120MG [Suspect]
     Active Substance: LANREOTIDE ACETATE
     Indication: NEUROENDOCRINE CARCINOMA
     Route: 058
     Dates: start: 20180723
  4. SOMATULINE 120MG [Suspect]
     Active Substance: LANREOTIDE ACETATE
     Dosage: DOSE NOT REPORTED
     Route: 065
     Dates: start: 20181003
  5. SOMATULINE 120MG [Suspect]
     Active Substance: LANREOTIDE ACETATE
     Dosage: DOSE NOT REPORTED
     Route: 065
     Dates: start: 20181029
  6. SOMATULINE 120MG [Suspect]
     Active Substance: LANREOTIDE ACETATE
     Dosage: DOSE NOT REPORTED
     Route: 065
     Dates: start: 20181001

REACTIONS (1)
  - Diabetes mellitus [Recovering/Resolving]

NARRATIVE: CASE EVENT DATE: 20180514
